FAERS Safety Report 20914914 (Version 1)
Quarter: 2022Q2

REPORT INFORMATION
  Report Type: Spontaneous
  Country: US (occurrence: US)
  Receive Date: 20220604
  Receipt Date: 20220604
  Transmission Date: 20220721
  Serious: No
  Sender: FDA-Public Use
  Company Number: US-SA-SAC20220530000647

PATIENT
  Age: 27 Year
  Sex: Female

DRUGS (13)
  1. DUPIXENT [Suspect]
     Active Substance: DUPILUMAB
     Indication: Asthma
     Dosage: 300 MG, QOW
     Route: 058
  2. DUPIXENT [Suspect]
     Active Substance: DUPILUMAB
     Indication: Chronic sinusitis
  3. DUPIXENT [Suspect]
     Active Substance: DUPILUMAB
     Indication: Sinus polyp
  4. METHYLPREDNISOLONE [Concomitant]
     Active Substance: METHYLPREDNISOLONE
  5. BACTRIM [Concomitant]
     Active Substance: SULFAMETHOXAZOLE\TRIMETHOPRIM
     Dosage: 400MG-80MG
  6. EPINEPHRINE [Concomitant]
     Active Substance: EPINEPHRINE
     Dosage: 0.15MG/0.3 AUTO INJCT
  7. BENADRYL [Concomitant]
     Active Substance: DIPHENHYDRAMINE HYDROCHLORIDE
  8. MAXALT [Concomitant]
     Active Substance: RIZATRIPTAN BENZOATE
  9. ALLEGRA D 12HR [Concomitant]
  10. ALBUTEROL SULFATE [Concomitant]
     Active Substance: ALBUTEROL SULFATE
  11. TYLENOL [Concomitant]
     Active Substance: ACETAMINOPHEN
  12. ADVIL [Concomitant]
     Active Substance: IBUPROFEN
  13. CHARLOTTE 24 FE [Concomitant]
     Dosage: 1MG-20(24) TAB CHEW

REACTIONS (6)
  - Sinusitis [Unknown]
  - Condition aggravated [Unknown]
  - Sinus congestion [Unknown]
  - Headache [Unknown]
  - Product use in unapproved indication [Unknown]
  - Product dose omission issue [Unknown]

NARRATIVE: CASE EVENT DATE: 20200101
